FAERS Safety Report 12333807 (Version 2)
Quarter: 2016Q4

REPORT INFORMATION
  Report Type: Spontaneous
  Country: US (occurrence: US)
  Receive Date: 20160504
  Receipt Date: 20161013
  Transmission Date: 20170207
  Serious: No
  Sender: FDA-Public Use
  Company Number: US-ROCHE-1714254

PATIENT
  Age: 76 Year
  Sex: Male

DRUGS (7)
  1. ZETIA [Concomitant]
     Active Substance: EZETIMIBE
  2. RAMIPRIL. [Concomitant]
     Active Substance: RAMIPRIL
  3. ESBRIET [Suspect]
     Active Substance: PIRFENIDONE
     Indication: IDIOPATHIC PULMONARY FIBROSIS
     Dosage: 3 CAPSULES THRICE DAILY
     Route: 048
     Dates: start: 20151031
  4. ESBRIET [Suspect]
     Active Substance: PIRFENIDONE
     Dosage: 3 CAPSULES THRICE DAILY
     Route: 048
     Dates: start: 20151104
  5. ASPIRIN. [Concomitant]
     Active Substance: ASPIRIN
  6. CRESTOR [Concomitant]
     Active Substance: ROSUVASTATIN CALCIUM
  7. DILTIAZEM. [Concomitant]
     Active Substance: DILTIAZEM

REACTIONS (3)
  - Rash [Not Recovered/Not Resolved]
  - Fatigue [Unknown]
  - Solar urticaria [Unknown]

NARRATIVE: CASE EVENT DATE: 201602
